FAERS Safety Report 23778199 (Version 2)
Quarter: 2024Q2

REPORT INFORMATION
  Report Type: Spontaneous
  Country: US (occurrence: US)
  Receive Date: 20240424
  Receipt Date: 20240509
  Transmission Date: 20240716
  Serious: No
  Sender: FDA-Public Use
  Company Number: US-Indivior Limited-INDV-144454-2024

PATIENT

DRUGS (2)
  1. PERSERIS [Suspect]
     Active Substance: RISPERIDONE
     Indication: Product used for unknown indication
     Dosage: UNK, QMO
     Route: 065
  2. PERSERIS [Suspect]
     Active Substance: RISPERIDONE

REACTIONS (1)
  - Drug effect less than expected [Recovered/Resolved]
